FAERS Safety Report 15813552 (Version 2)
Quarter: 2019Q1

REPORT INFORMATION
  Report Type: Report from Study
  Country: None (occurrence: AT)
  Receive Date: 20190111
  Receipt Date: 20190307
  Transmission Date: 20190417
  Serious: Yes (Death)
  Sender: FDA-Public Use
  Company Number: AT-ABBVIE-19P-009-2620286-00

PATIENT
  Age: 28 Year
  Sex: Male

DRUGS (2)
  1. COMPENSAN [Concomitant]
     Indication: PRODUCT SUBSTITUTION
     Route: 048
     Dates: start: 20160225
  2. GLECAPREVIR/PIBRENTASVIR [Suspect]
     Active Substance: GLECAPREVIR\PIBRENTASVIR
     Indication: HEPATITIS C
     Route: 048
     Dates: start: 20180629, end: 20180823

REACTIONS (1)
  - Overdose [Fatal]

NARRATIVE: CASE EVENT DATE: 20181127
